FAERS Safety Report 24554502 (Version 6)
Quarter: 2025Q4

REPORT INFORMATION
  Report Type: Report from Study
  Country: US (occurrence: US)
  Receive Date: 20241028
  Receipt Date: 20251112
  Transmission Date: 20260119
  Serious: Yes (Other)
  Sender: TAKEDA
  Company Number: US-TAKEDA-2024TUS108015

PATIENT
  Age: 12 Year
  Sex: Female

DRUGS (3)
  1. ADVATE [Suspect]
     Active Substance: ANTIHEMOPHILIC FACTOR, HUMAN RECOMBINANT
     Indication: Haemorrhage
     Dosage: 2340 INTERNATIONAL UNIT
  2. ADVATE [Suspect]
     Active Substance: ANTIHEMOPHILIC FACTOR, HUMAN RECOMBINANT
     Dosage: 3375 INTERNATIONAL UNIT
  3. ADVATE [Suspect]
     Active Substance: ANTIHEMOPHILIC FACTOR, HUMAN RECOMBINANT
     Dosage: 3375 INTERNATIONAL UNIT

REACTIONS (6)
  - Gingival bleeding [Unknown]
  - Heavy menstrual bleeding [Recovered/Resolved]
  - Tooth loss [Unknown]
  - Polymenorrhoea [Unknown]
  - Joint injury [Unknown]
  - Product use issue [Unknown]

NARRATIVE: CASE EVENT DATE: 20240519
